FAERS Safety Report 24002169 (Version 3)
Quarter: 2024Q3

REPORT INFORMATION
  Report Type: Spontaneous
  Country: FR (occurrence: FR)
  Receive Date: 20240622
  Receipt Date: 20240717
  Transmission Date: 20241016
  Serious: Yes (Disabling)
  Sender: ACCORD
  Company Number: FR-Accord-431821

PATIENT
  Age: 38 Year
  Sex: Female
  Weight: 48 kg

DRUGS (1)
  1. PACLITAXEL [Suspect]
     Active Substance: PACLITAXEL
     Indication: Breast cancer
     Dosage: STRENGTH:6 MG/ML;SOLUTION FOR DILUTION FOR INFUSION
     Route: 042
     Dates: start: 20240507, end: 20240514

REACTIONS (1)
  - Toxic skin eruption [Recovered/Resolved]

NARRATIVE: CASE EVENT DATE: 20240514
